FAERS Safety Report 6737200-1 (Version None)
Quarter: 2010Q2

REPORT INFORMATION
  Report Type: 
  Country: None (occurrence: None)
  Receive Date: 20100524
  Receipt Date: 20100513
  Transmission Date: 20101027
  Serious: No
  Sender: FDA-Public Use
  Company Number: US-BIOGENIDEC-2010BI016414

PATIENT
  Age: 38 Year
  Sex: Male

DRUGS (2)
  1. TYSABRI [Suspect]
     Indication: MULTIPLE SCLEROSIS
     Route: 042
     Dates: start: 20081215, end: 20091125
  2. TYSABRI [Suspect]
     Route: 042
     Dates: start: 20100217

REACTIONS (7)
  - BLADDER DISORDER [None]
  - BLOOD TESTOSTERONE DECREASED [None]
  - FALL [None]
  - FATIGUE [None]
  - PAIN IN EXTREMITY [None]
  - SKIN LACERATION [None]
  - VISION BLURRED [None]
